FAERS Safety Report 7551211-8 (Version None)
Quarter: 2011Q2

REPORT INFORMATION
  Report Type: 
  Country: None (occurrence: None)
  Receive Date: 20110616
  Receipt Date: 20110603
  Transmission Date: 20111010
  Serious: Yes (Other)
  Sender: FDA-Public Use
  Company Number: PHFR2011GB02941

PATIENT
  Sex: Male

DRUGS (3)
  1. CLOZAPINE [Suspect]
     Indication: SCHIZOPHRENIA
     Dosage: 350 MG, QD
     Route: 048
     Dates: start: 20080305
  2. ARIPIPRAZOLE [Concomitant]
     Indication: SUPPLEMENTATION THERAPY
     Dosage: 10 MG
     Dates: start: 20101101
  3. CITALOPRAM HYDROBROMIDE [Concomitant]
     Indication: DEPRESSED MOOD
     Dosage: 40 MG
     Dates: start: 20080601

REACTIONS (7)
  - DIARRHOEA [None]
  - HYPERHIDROSIS [None]
  - FATIGUE [None]
  - TOOTH ABSCESS [None]
  - DECREASED APPETITE [None]
  - NEUTROPHIL COUNT DECREASED [None]
  - WHITE BLOOD CELL COUNT DECREASED [None]
